FAERS Safety Report 24047168 (Version 8)
Quarter: 2025Q4

REPORT INFORMATION
  Report Type: Report from Study
  Country: US (occurrence: None)
  Receive Date: 20240703
  Receipt Date: 20251125
  Transmission Date: 20260118
  Serious: Yes (Hospitalization, Other)
  Sender: UCB
  Company Number: US-UCBSA-2024025222

PATIENT
  Age: 11 Year
  Weight: 35.4 kg

DRUGS (28)
  1. FENFLURAMINE [Suspect]
     Active Substance: FENFLURAMINE
     Indication: Lennox-Gastaut syndrome
     Dosage: 5.9 MILLILITER, 2X/DAY (BID)
  2. FENFLURAMINE [Suspect]
     Active Substance: FENFLURAMINE
     Indication: Seizure
     Dosage: 5.3 MILLILITER, 2X/DAY (BID)
  3. FENFLURAMINE [Suspect]
     Active Substance: FENFLURAMINE
     Dosage: 23.3 MILLIGRAM PER DAY
  4. DEPAKOTE [Concomitant]
     Active Substance: DIVALPROEX SODIUM
     Indication: Tonic convulsion
     Dosage: 375 MILLIGRAM, 375 MILLIGRAM AND 500 MILLIGRAM
  5. DEPAKOTE [Concomitant]
     Active Substance: DIVALPROEX SODIUM
     Indication: Seizure
     Dosage: 500 MILLIGRAM, 2X/DAY (BID)
  6. DEPAKOTE [Concomitant]
     Active Substance: DIVALPROEX SODIUM
     Dosage: 1000 MILLIGRAM, 2X/DAY (BID) VIA G TUBE
  7. ONFI [Concomitant]
     Active Substance: CLOBAZAM
     Indication: Tonic convulsion
     Dosage: 10 MILLIGRAM, 2X/DAY (BID) VIA G TUBE
  8. ONFI [Concomitant]
     Active Substance: CLOBAZAM
     Indication: Seizure
     Dosage: 10 MILLIGRAM IN THE MORNING AND 20 MILLIGRAM IN THE EVENING
  9. EPIDIOLEX [Concomitant]
     Active Substance: CANNABIDIOL
     Indication: Tonic convulsion
     Dosage: 300 MILLIGRAM, 2X/DAY (BID)
  10. EPIDIOLEX [Concomitant]
     Active Substance: CANNABIDIOL
     Indication: Seizure
     Dosage: 3 MILLILITER, 2X/DAY (BID) VIA G TUBE
  11. VALTOCO [Concomitant]
     Active Substance: DIAZEPAM
     Indication: Seizure
     Dosage: 10 MILLIGRAM ONE SPRAY (10 MG) INTO ONE NOSTRIL FOR A SEIZURE LONGER THAN 5 MINUTES
  12. TYLENOL [Concomitant]
     Active Substance: ACETAMINOPHEN
     Indication: Pain
     Dosage: 500 MILLIGRAM JEJUNOSTOMY
  13. TYLENOL [Concomitant]
     Active Substance: ACETAMINOPHEN
     Indication: Pyrexia
  14. ALBUTEROL [Concomitant]
     Active Substance: ALBUTEROL
     Indication: Wheezing
     Dosage: 90 MICROGRAM INHALE 2 PUFFS EVERY FOUR (4) HOURS AS NEEDED
  15. VALISONE) [Concomitant]
     Indication: Product used for unknown indication
     Dosage: UNK, 2X/DAY (BID)
  16. CALCIUM CARBONATE [Concomitant]
     Active Substance: CALCIUM CARBONATE
     Indication: Product used for unknown indication
     Dosage: 1500 MILLIGRAM TOTAL
  17. FAMOTIDINE [Concomitant]
     Active Substance: FAMOTIDINE
     Indication: Product used for unknown indication
     Dosage: 10 MILLIGRAM, 2X/DAY (BID)
  18. FAMOTIDINE [Concomitant]
     Active Substance: FAMOTIDINE
     Dosage: 20 MILLIGRAM, 2X/DAY (BID)
  19. FLOVENT HFA [Concomitant]
     Active Substance: FLUTICASONE PROPIONATE
     Indication: Product used for unknown indication
     Dosage: 110 MICROGRAM 2 PUFFS TWO (2) TIMES A DAY
  20. GLYCOPYRROLATE [Concomitant]
     Active Substance: GLYCOPYRROLATE
     Indication: Product used for unknown indication
     Dosage: 1 MILLIGRAM
  21. ADVll,MOTRIN [Concomitant]
     Indication: Pain
     Dosage: 200 MILLIGRAM, AS NEEDED (PRN)
  22. CARNITOR [Concomitant]
     Active Substance: LEVOCARNITINE
     Indication: Product used for unknown indication
     Dosage: 500 MILLIGRAM
  23. CARNITOR [Concomitant]
     Active Substance: LEVOCARNITINE
     Dosage: 500 MILLIGRAM, 2X/DAY (BID)
  24. SINGULAIR [Concomitant]
     Active Substance: MONTELUKAST SODIUM
     Indication: Product used for unknown indication
     Dosage: 5 MILLIGRAM, ONCE DAILY (QD)
  25. KETOVIE 3:1 [Concomitant]
     Indication: Product used for unknown indication
     Dosage: 1275 MILLILITER, ONCE DAILY (QD)
  26. ZOFRAN [Concomitant]
     Active Substance: ONDANSETRON HYDROCHLORIDE
     Indication: Nausea
     Dosage: 4 MILLIGRAM, AS NEEDED (PRN)
  27. (MIRALA [Concomitant]
     Indication: Constipation
     Dosage: 17 GRAM, AS NEEDED (PRN)
  28. SODIUM BICARBONATE [Concomitant]
     Active Substance: SODIUM BICARBONATE
     Indication: Product used for unknown indication
     Dosage: UNK

REACTIONS (8)
  - Pneumonia [Recovered/Resolved]
  - Tricuspid valve incompetence [Not Recovered/Not Resolved]
  - Mitral valve incompetence [Not Recovered/Not Resolved]
  - Seizure [Unknown]
  - Tonic convulsion [Unknown]
  - Upper respiratory tract infection [Unknown]
  - Blood pressure systolic increased [Unknown]
  - Dilatation of sinotubular junction [Not Recovered/Not Resolved]
